FAERS Safety Report 4429804-6 (Version None)
Quarter: 2004Q3

REPORT INFORMATION
  Report Type: 
  Country: None (occurrence: None)
  Receive Date: 20040820
  Receipt Date: 20040809
  Transmission Date: 20050211
  Serious: Yes (Death)
  Sender: FDA-Public Use
  Company Number: DE-BRISTOL-MYERS SQUIBB COMPANY-12669388

PATIENT
  Age: 55 Year
  Sex: Male

DRUGS (2)
  1. APROVEL TABS [Suspect]
     Indication: HYPERTENSION
     Route: 048
     Dates: end: 20031201
  2. ANALGESIC LIQ [Concomitant]
     Indication: INTERVERTEBRAL DISC PROTRUSION
     Dates: end: 20031201

REACTIONS (2)
  - FALL [None]
  - SUDDEN CARDIAC DEATH [None]
